FAERS Safety Report 10145902 (Version 2)
Quarter: 2014Q2

REPORT INFORMATION
  Report Type: Spontaneous
  Country: PL (occurrence: PL)
  Receive Date: 20140501
  Receipt Date: 20140508
  Transmission Date: 20141212
  Serious: Yes (Hospitalization)
  Sender: FDA-Public Use
  Company Number: PHHY2014PL052360

PATIENT
  Age: 6 Year
  Sex: Male

DRUGS (7)
  1. CICLOSPORIN [Suspect]
     Indication: HISTIOCYTOSIS HAEMATOPHAGIC
     Dosage: 5 MG/KG, UNK
  2. ETANERCEPT [Concomitant]
     Indication: JUVENILE IDIOPATHIC ARTHRITIS
  3. METHYLPREDNISOLONE [Concomitant]
     Indication: HISTIOCYTOSIS HAEMATOPHAGIC
     Dosage: 15 MG/KG, UNK
  4. METHYLPREDNISOLONE [Concomitant]
     Dosage: UNK
  5. KETOCONAZOLE [Concomitant]
  6. ACYCLOVIR [Concomitant]
  7. IMMUNOGLOBULIN I.V [Concomitant]
     Dosage: 2 G/KG, UNK
     Route: 042

REACTIONS (11)
  - Posterior reversible encephalopathy syndrome [Recovering/Resolving]
  - Immunosuppressant drug level increased [Unknown]
  - Blood pressure increased [Recovering/Resolving]
  - Posture abnormal [Recovering/Resolving]
  - Eye movement disorder [Recovering/Resolving]
  - Tremor [Recovering/Resolving]
  - Altered state of consciousness [Recovering/Resolving]
  - Loss of consciousness [Recovering/Resolving]
  - Confusional state [Recovering/Resolving]
  - Oral mucosa erosion [Unknown]
  - Decreased activity [Recovering/Resolving]
